FAERS Safety Report 13734894 (Version 3)
Quarter: 2017Q3

REPORT INFORMATION
  Report Type: Spontaneous
  Country: IT (occurrence: IT)
  Receive Date: 20170710
  Receipt Date: 20170816
  Transmission Date: 20171127
  Serious: Yes (Other)
  Sender: FDA-Public Use
  Company Number: IT-ACCORD-049981

PATIENT
  Age: 53 Year
  Sex: Female
  Weight: 54 kg

DRUGS (3)
  1. OXALIPLATIN. [Suspect]
     Active Substance: OXALIPLATIN
     Indication: ADENOCARCINOMA GASTRIC
     Dosage: ALSO RECEIVED 130 MG.
     Route: 042
     Dates: start: 20161114
  2. LEVOFOLINIC ACID [Concomitant]
     Active Substance: LEVOLEUCOVORIN
     Indication: PRODUCT USED FOR UNKNOWN INDICATION
     Dosage: ALSO RECEIVED 312 MG
     Route: 042
     Dates: start: 20161114, end: 20161227
  3. FLUOROURACIL. [Suspect]
     Active Substance: FLUOROURACIL
     Indication: ADENOCARCINOMA GASTRIC
     Dosage: 490 MG CYCLICAL INTRAVENOUS BOLUS.?ALSO RECEIVED 3740 MG IV INFUSION AND 620 MG IV BOLUS.
     Route: 041
     Dates: start: 20161114

REACTIONS (8)
  - Nausea [Recovering/Resolving]
  - Neutropenia [Recovering/Resolving]
  - Off label use [Unknown]
  - Infusion related reaction [Recovering/Resolving]
  - Vomiting [Recovering/Resolving]
  - Skin hyperpigmentation [Recovering/Resolving]
  - Abdominal pain [Recovering/Resolving]
  - Constipation [Recovering/Resolving]

NARRATIVE: CASE EVENT DATE: 20161114
